FAERS Safety Report 7028876-2 (Version None)
Quarter: 2010Q4

REPORT INFORMATION
  Report Type: 
  Country: None (occurrence: None)
  Receive Date: 20101005
  Receipt Date: 20100901
  Transmission Date: 20110411
  Serious: Yes (Other)
  Sender: FDA-Public Use
  Company Number: FR-BRISTOL-MYERS SQUIBB COMPANY-15178700

PATIENT
  Age: 55 Year
  Sex: Female

DRUGS (1)
  1. GLUCOVANCE [Suspect]
     Indication: DIABETES MELLITUS
     Dosage: 2009-FEB10: 4DF(1 YR) FEB10-MAY10: 2DF(TID)-3MONTHS STRENGTH: 2.5MG/500MG
     Route: 048
     Dates: start: 20090101, end: 20100501

REACTIONS (3)
  - CEREBROVASCULAR ACCIDENT [None]
  - DECREASED APPETITE [None]
  - NAUSEA [None]
